FAERS Safety Report 9009880 (Version 1)
Quarter: 2013Q1

REPORT INFORMATION
  Report Type: Spontaneous
  Country: US (occurrence: US)
  Receive Date: 20130110
  Receipt Date: 20130110
  Transmission Date: 20140127
  Serious: No
  Sender: FDA-Public Use
  Company Number: US-TEVA-379484USA

PATIENT
  Sex: Male
  Weight: 118.04 kg

DRUGS (3)
  1. QNASL [Suspect]
     Indication: SINUSITIS
     Dosage: 2 SPRAYS
  2. BLOOD PRESSURE MEDICATION [Concomitant]
  3. PROSTATE MEDICATIONS [Concomitant]

REACTIONS (2)
  - Dysphonia [Not Recovered/Not Resolved]
  - Aphonia [Not Recovered/Not Resolved]
